FAERS Safety Report 5902955-2 (Version None)
Quarter: 2008Q3

REPORT INFORMATION
  Report Type: 
  Country: None (occurrence: None)
  Receive Date: 20080926
  Receipt Date: 20080926
  Transmission Date: 20090109
  Serious: Yes (Life-Threatening, Disabling)
  Sender: FDA-Public Use
  Company Number: None

PATIENT
  Age: 46 Year
  Sex: Female

DRUGS (1)
  1. CHANTIX [Suspect]
     Indication: SMOKING CESSATION THERAPY
     Dosage: TYPICAL---CAN'T GET UP NOW TO CHECK BOTTLE
     Dates: start: 20061220, end: 20070330

REACTIONS (15)
  - ABNORMAL DREAMS [None]
  - ASTHENIA [None]
  - BURNING SENSATION [None]
  - DEPRESSION [None]
  - DIZZINESS [None]
  - FIBROMYALGIA [None]
  - HYPOAESTHESIA [None]
  - INFLUENZA [None]
  - MENINGIOMA [None]
  - MUSCLE DISORDER [None]
  - NEUROPATHY PERIPHERAL [None]
  - NO THERAPEUTIC RESPONSE [None]
  - PAIN [None]
  - VISION BLURRED [None]
  - WEIGHT INCREASED [None]
